FAERS Safety Report 23935060 (Version 2)
Quarter: 2024Q2

REPORT INFORMATION
  Report Type: Report from Study
  Country: IT (occurrence: IT)
  Receive Date: 20240604
  Receipt Date: 20240621
  Transmission Date: 20240715
  Serious: Yes (Hospitalization)
  Sender: FDA-Public Use
  Company Number: IT-BAXTER-2024BAX019176

PATIENT
  Age: 70 Year
  Sex: Male
  Weight: 57 kg

DRUGS (16)
  1. CYCLOPHOSPHAMIDE [Suspect]
     Active Substance: CYCLOPHOSPHAMIDE
     Indication: Diffuse large B-cell lymphoma
     Dosage: 1200 MG, EVERY 3 WEEKS
     Route: 042
     Dates: start: 20240221, end: 20240424
  2. CYCLOPHOSPHAMIDE [Suspect]
     Active Substance: CYCLOPHOSPHAMIDE
     Dosage: 1200 MG, EVERY 3 WEEKS
     Route: 042
     Dates: start: 20240523
  3. DOXORUBICIN [Suspect]
     Active Substance: DOXORUBICIN
     Indication: Diffuse large B-cell lymphoma
     Dosage: 80 MG, EVERY 3 WEEKS
     Route: 042
     Dates: start: 20240221, end: 20240424
  4. DOXORUBICIN [Suspect]
     Active Substance: DOXORUBICIN
     Dosage: 80 MG, EVERY 3 WEEKS
     Route: 042
     Dates: start: 20240523
  5. RITUXIMAB [Suspect]
     Active Substance: RITUXIMAB
     Indication: Diffuse large B-cell lymphoma
     Dosage: 600 MG, EVERY 3 WEEKS
     Route: 042
     Dates: start: 20240228, end: 20240424
  6. RITUXIMAB [Suspect]
     Active Substance: RITUXIMAB
     Dosage: 600 MG, EVERY 3 WEEKS
     Route: 042
     Dates: start: 20240523
  7. VINCRISTINE [Suspect]
     Active Substance: VINCRISTINE
     Indication: Diffuse large B-cell lymphoma
     Dosage: 2 MG, EVERY 3 WEEKS
     Route: 042
     Dates: start: 20240221, end: 20240424
  8. VINCRISTINE [Suspect]
     Active Substance: VINCRISTINE
     Dosage: 2 MG, EVERY 3 WEEKS
     Route: 042
     Dates: start: 20240523
  9. PREDNISONE [Suspect]
     Active Substance: PREDNISONE
     Indication: Diffuse large B-cell lymphoma
     Dosage: 100 MG C1-6, D1-5, EVERY 1 DAYS
     Route: 048
     Dates: start: 20240221, end: 20240428
  10. PREDNISONE [Suspect]
     Active Substance: PREDNISONE
     Dosage: 100 MG C1-6, D1-5, EVERY 1 DAYS
     Route: 048
     Dates: start: 20240523
  11. EPCORITAMAB [Suspect]
     Active Substance: EPCORITAMAB
     Indication: Diffuse large B-cell lymphoma
     Dosage: (DRUG NOT ADMINISTERED)
     Route: 065
  12. PANTOPRAZOLE SODIUM [Concomitant]
     Active Substance: PANTOPRAZOLE SODIUM
     Indication: Gastrointestinal disorder prophylaxis
     Dosage: 40 MG, EVERY 1 DAYS
     Route: 065
     Dates: start: 20240228
  13. ONDANSETRON [Concomitant]
     Active Substance: ONDANSETRON
     Indication: Nausea
     Dosage: 16 MG, AS NECESSARY
     Route: 065
     Dates: start: 20240225
  14. ACYCLOVIR [Concomitant]
     Active Substance: ACYCLOVIR
     Indication: Antiviral treatment
     Dosage: 400 MG EVERY 1 DAYS
     Route: 065
     Dates: start: 20240225
  15. SULFAMETHOXAZOLE\TRIMETHOPRIM [Concomitant]
     Active Substance: SULFAMETHOXAZOLE\TRIMETHOPRIM
     Indication: Antibiotic therapy
     Dosage: 800/160 MG, 3/ WEEKS (CR)
     Route: 065
     Dates: start: 20240225
  16. FILGRASTIM [Concomitant]
     Active Substance: FILGRASTIM
     Indication: Prophylaxis
     Dosage: 30 MMU/ML AS NECESSARY
     Route: 065
     Dates: start: 20240225

REACTIONS (1)
  - Pleural thickening [Not Recovered/Not Resolved]

NARRATIVE: CASE EVENT DATE: 20240513
